FAERS Safety Report 4604944-7 (Version None)
Quarter: 2005Q1

REPORT INFORMATION
  Report Type: 
  Country: None (occurrence: None)
  Receive Date: 20050309
  Receipt Date: 20050309
  Transmission Date: 20050727
  Serious: Yes (Life-Threatening)
  Sender: FDA-Public Use
  Company Number: None

PATIENT
  Age: 42 Year
  Sex: Male

DRUGS (9)
  1. HALOPERIDOL [Suspect]
     Indication: AGITATION
     Dosage: 5 MG IV G  6 HOURS  +  Q 4 HOURS PRN
     Route: 042
     Dates: start: 20040221
  2. HALOPERIDOL [Suspect]
     Indication: AGITATION
     Dosage: 5 MG IV G  6 HOURS  +  Q 4 HOURS PRN
     Route: 042
     Dates: start: 20040222
  3. ATIVAN [Concomitant]
  4. FENTANYL [Concomitant]
  5. CLINDAMYCIN [Concomitant]
  6. ARANESP [Concomitant]
  7. ROCEPHIN [Concomitant]
  8. MOTRIN [Concomitant]
  9. LOVENOX [Concomitant]

REACTIONS (2)
  - BODY TEMPERATURE INCREASED [None]
  - MUSCLE RIGIDITY [None]
